FAERS Safety Report 6215880-7 (Version None)
Quarter: 2009Q2

REPORT INFORMATION
  Report Type: 
  Country: None (occurrence: None)
  Receive Date: 20090605
  Receipt Date: 20090528
  Transmission Date: 20091009
  Serious: Yes (Other)
  Sender: FDA-Public Use
  Company Number: US-ROCHE-627631

PATIENT
  Sex: Female
  Weight: 68.9 kg

DRUGS (12)
  1. BONIVA [Suspect]
     Indication: OSTEOPENIA
     Route: 048
     Dates: start: 20071019, end: 20090501
  2. PROPRANOLOL HYDROCHLORIDE [Concomitant]
     Indication: TREMOR
     Dosage: START DATE: YEARS AGO
     Route: 048
  3. CENTRUM SILVER [Concomitant]
  4. CITRACAL [Concomitant]
     Dosage: DRUG REPORTED: CITRUCAL
  5. ASCORBIC ACID [Concomitant]
  6. VITAMIN B COMPLEX CAP [Concomitant]
  7. ZOCOR [Concomitant]
     Dosage: START DATE: YEARS AGO; FREQUENCY: QHS
     Route: 048
  8. PRILOSEC [Concomitant]
  9. ZOLOFT [Concomitant]
     Indication: DEPRESSION
     Dosage: START DATE: YEARS AGO
     Route: 048
  10. CHROMAGEN FA [Concomitant]
     Dosage: DRUG REPORTED: CHROMIGEN FA
  11. ASTELIN [Concomitant]
  12. PEPCID [Concomitant]
     Dosage: DOSE REPORTED AS 20 BID

REACTIONS (8)
  - DIZZINESS [None]
  - HERPES ZOSTER [None]
  - IMPAIRED HEALING [None]
  - INFLUENZA [None]
  - OSTEONECROSIS [None]
  - TOOTH INFECTION [None]
  - TOOTHACHE [None]
  - TREMOR [None]
